FAERS Safety Report 14368539 (Version 2)
Quarter: 2018Q1

REPORT INFORMATION
  Report Type: Report from Study
  Country: US (occurrence: US)
  Receive Date: 20180109
  Receipt Date: 20180307
  Transmission Date: 20180509
  Serious: Yes (Hospitalization)
  Sender: FDA-Public Use
  Company Number: US-ACTELION-A-NJ2018-165268

PATIENT
  Age: 85 Year
  Sex: Male

DRUGS (2)
  1. WARFARIN [Concomitant]
     Active Substance: WARFARIN
  2. TRACLEER [Suspect]
     Active Substance: BOSENTAN
     Indication: PULMONARY HYPERTENSION
     Dosage: 125 MG, BID
     Route: 048
     Dates: start: 201411

REACTIONS (14)
  - Infection [Unknown]
  - Aortic arteriosclerosis [Unknown]
  - Fall [Unknown]
  - Haemorrhage intracranial [Unknown]
  - Haemorrhage [Unknown]
  - Dizziness [Unknown]
  - Eye swelling [Unknown]
  - Adenocarcinoma [Unknown]
  - Face injury [Unknown]
  - Chest pain [Unknown]
  - Palpitations [Unknown]
  - Arteriosclerosis coronary artery [Unknown]
  - Arrhythmia [Unknown]
  - Pulmonary embolism [Unknown]

NARRATIVE: CASE EVENT DATE: 20171215
